FAERS Safety Report 21636070 (Version 1)
Quarter: 2022Q4

REPORT INFORMATION
  Report Type: Other
  Country: CZ (occurrence: CZ)
  Receive Date: 20221123
  Receipt Date: 20221123
  Transmission Date: 20230112
  Serious: Yes (Hospitalization, Other)
  Sender: FDA-Public Use
  Company Number: None

PATIENT
  Age: 21 Year
  Sex: Female

DRUGS (4)
  1. IBUPROFEN [Suspect]
     Active Substance: IBUPROFEN
     Indication: Product used for unknown indication
     Dosage: 4000 MILLIGRAM (10 TBL X 400 MG) (TABLET)
     Route: 048
  2. TORECAN [Suspect]
     Active Substance: THIETHYLPERAZINE MALATE
     Indication: Product used for unknown indication
     Dosage: 130 MILLIGRAM (20 TBL X 6,5 MG)
     Route: 048
  3. ACETAMINOPHEN [Suspect]
     Active Substance: ACETAMINOPHEN
     Indication: Product used for unknown indication
     Dosage: 10000 MILLIGRAM
     Route: 065
     Dates: start: 20200919
  4. CODEINE [Suspect]
     Active Substance: CODEINE
     Indication: Product used for unknown indication
     Dosage: 20 DOSAGE FORM (20 TBL)
     Route: 065

REACTIONS (2)
  - Suicide attempt [Unknown]
  - Intentional overdose [Unknown]

NARRATIVE: CASE EVENT DATE: 20200919
